FAERS Safety Report 5756126-3 (Version None)
Quarter: 2008Q2

REPORT INFORMATION
  Report Type: 
  Country: None (occurrence: None)
  Receive Date: 20080602
  Receipt Date: 20080529
  Transmission Date: 20081010
  Serious: Yes (Death, Hospitalization, Other)
  Sender: FDA-Public Use
  Company Number: BR-ABBOTT-08P-020-0454126-00

PATIENT
  Sex: Male
  Weight: 60.8 kg

DRUGS (1)
  1. RITONAVIR SOFT GELATIN CAPSULES [Suspect]
     Indication: HIV INFECTION
     Route: 048

REACTIONS (2)
  - CONFUSIONAL STATE [None]
  - DEATH [None]
